FAERS Safety Report 7348615-5 (Version None)
Quarter: 2011Q1

REPORT INFORMATION
  Report Type: 
  Country: None (occurrence: None)
  Receive Date: 20110314
  Receipt Date: 20110302
  Transmission Date: 20110831
  Serious: No
  Sender: FDA-Public Use
  Company Number: US-BIOGENIDEC-2011BI004728

PATIENT
  Age: 56 Year
  Sex: Female

DRUGS (3)
  1. TYLENOL [Concomitant]
     Indication: PREMEDICATION
  2. TYSABRI [Suspect]
     Indication: MULTIPLE SCLEROSIS
     Route: 042
     Dates: start: 20101230, end: 20101230
  3. BENADRYL [Concomitant]
     Indication: PREMEDICATION

REACTIONS (5)
  - FLUSHING [None]
  - PALPITATIONS [None]
  - RASH PRURITIC [None]
  - ADVERSE DRUG REACTION [None]
  - DIZZINESS [None]
